FAERS Safety Report 4265816-3 (Version None)
Quarter: 2004Q1

REPORT INFORMATION
  Report Type: 
  Country: None (occurrence: None)
  Receive Date: 20040107
  Receipt Date: 20040107
  Transmission Date: 20041129
  Serious: Yes (Life-Threatening, Hospitalization, Disabling)
  Sender: FDA-Public Use
  Company Number: None

PATIENT
  Age: 32 Year
  Sex: Female
  Weight: 115 kg

DRUGS (3)
  1. SEPTOCAINE [Suspect]
     Indication: ENDODONTIC PROCEDURE
     Dosage: 1 CARPULE 1.8 ML LOCAL ANESTHESIA
     Route: 004
     Dates: start: 20030109
  2. SEPTOCAINE [Suspect]
     Indication: PAIN MANAGEMENT
     Dosage: 1 CARPULE 1.8 ML LOCAL ANESTHESIA
     Route: 004
     Dates: start: 20030109
  3. LIDOCAINE [Concomitant]

REACTIONS (2)
  - CONSCIOUSNESS FLUCTUATING [None]
  - CONVULSION [None]
